FAERS Safety Report 8856669 (Version 1)
Quarter: 2012Q4

REPORT INFORMATION
  Report Type: Spontaneous
  Country: GB (occurrence: None)
  Receive Date: 20121019
  Receipt Date: 20121019
  Transmission Date: 20130627
  Serious: Yes (Other)
  Sender: FDA-Public Use
  Company Number: GER/UKI/12/0026260

PATIENT
  Age: 19 Year
  Weight: 89 kg

DRUGS (1)
  1. FLUOXETINE [Suspect]
     Indication: LOW MOOD
     Route: 048
     Dates: start: 20120820, end: 20120916

REACTIONS (5)
  - Headache [None]
  - Fatigue [None]
  - Anxiety [None]
  - Suicidal ideation [None]
  - Suicide attempt [None]
